FAERS Safety Report 6657762-2 (Version None)
Quarter: 2010Q1

REPORT INFORMATION
  Report Type: 
  Country: None (occurrence: None)
  Receive Date: 20100330
  Receipt Date: 20090909
  Transmission Date: 20100710
  Serious: Yes (Death)
  Sender: FDA-Public Use
  Company Number: US-TYCO HEALTHCARE/MALLINCKRODT-T200901466

PATIENT
  Age: 21 Year
  Sex: Male

DRUGS (5)
  1. METHADOSE [Suspect]
  2. OXYCODONE [Suspect]
  3. 3,4-MDMA [Suspect]
  4. DIAZEPAM [Suspect]
  5. COCAINE [Suspect]

REACTIONS (1)
  - MULTIPLE DRUG OVERDOSE [None]
